FAERS Safety Report 10811272 (Version 1)
Quarter: 2015Q1

REPORT INFORMATION
  Report Type: Spontaneous
  Country: US (occurrence: None)
  Receive Date: 20150213
  Receipt Date: 20150213
  Transmission Date: 20150721
  Serious: No
  Sender: FDA-Public Use
  Company Number: None

PATIENT
  Age: 35 Year
  Sex: Female

DRUGS (2)
  1. HYDROCODONE/CHLORPHENIRAMINE 10MG/5M KREMERL [Suspect]
     Active Substance: CHLORPHENIRAMINE HYDROCHLORIDE\HYDROCODONE
     Indication: COUGH
     Dosage: 90 TWICE DAILY TAKEN BY MOUTH
     Route: 048
     Dates: start: 20150210, end: 20150212
  2. HYDROCODONE/CHLORPHENIRAMINE 10MG/5M KREMERL [Suspect]
     Active Substance: CHLORPHENIRAMINE HYDROCHLORIDE\HYDROCODONE
     Indication: SLEEP DISORDER
     Dosage: 90 TWICE DAILY TAKEN BY MOUTH
     Route: 048
     Dates: start: 20150210, end: 20150212

REACTIONS (3)
  - Drug ineffective [None]
  - Product substitution issue [None]
  - Therapeutic response decreased [None]

NARRATIVE: CASE EVENT DATE: 20150210
